FAERS Safety Report 8518565-7 (Version None)
Quarter: 2012Q3

REPORT INFORMATION
  Report Type: 
  Country: None (occurrence: None)
  Receive Date: 20120718
  Receipt Date: 20120521
  Transmission Date: 20120928
  Serious: No
  Sender: FDA-Public Use
  Company Number: US-BRISTOL-MYERS SQUIBB COMPANY-16608002

PATIENT
  Age: 70 Year
  Sex: Female

DRUGS (3)
  1. ASPIRIN [Concomitant]
  2. METOPROLOL SUCCINATE [Concomitant]
  3. COUMADIN [Suspect]

REACTIONS (1)
  - ASTHENIA [None]
